FAERS Safety Report 5480620-6 (Version None)
Quarter: 2007Q4

REPORT INFORMATION
  Report Type: 
  Country: None (occurrence: None)
  Receive Date: 20071009
  Receipt Date: 20070928
  Transmission Date: 20080405
  Serious: Yes (Hospitalization)
  Sender: FDA-Public Use
  Company Number: BR-JNJFOC-20070304847

PATIENT
  Age: 4 Month
  Sex: Male

DRUGS (2)
  1. MAXIFEN [Suspect]
  2. MAXIFEN [Suspect]
     Indication: PYREXIA
     Dosage: UNKNOWN

REACTIONS (2)
  - CORONARY ARTERY DILATATION [None]
  - KAWASAKI'S DISEASE [None]
